FAERS Safety Report 19744028 (Version 2)
Quarter: 2021Q3

REPORT INFORMATION
  Report Type: Report from Study
  Country: None (occurrence: US)
  Receive Date: 20210824
  Receipt Date: 20210920
  Transmission Date: 20211014
  Serious: Yes (Hospitalization)
  Sender: FDA-Public Use
  Company Number: US-ABBVIE-21K-163-4045891-00

PATIENT
  Age: 73 Year
  Sex: Female
  Weight: 97.16 kg

DRUGS (5)
  1. HUMIRA [Suspect]
     Active Substance: ADALIMUMAB
     Dosage: TAKEN INJECTION INTO RIGHT THUMB
     Route: 058
     Dates: start: 20210818
  2. MODERNA COVID?19 VACCINE [Concomitant]
     Active Substance: CX-024414
     Route: 030
     Dates: start: 20210420, end: 20210420
  3. MODERNA COVID?19 VACCINE [Concomitant]
     Active Substance: CX-024414
     Indication: COVID-19 IMMUNISATION
     Route: 030
     Dates: start: 20210319, end: 20210319
  4. HUMIRA [Suspect]
     Active Substance: ADALIMUMAB
     Indication: RHEUMATOID ARTHRITIS
     Route: 058
     Dates: start: 2020
  5. METHOTREXATE. [Concomitant]
     Active Substance: METHOTREXATE
     Indication: RHEUMATOID ARTHRITIS

REACTIONS (11)
  - Limb injury [Recovering/Resolving]
  - Back pain [Recovering/Resolving]
  - Wrong technique in product usage process [Recovered/Resolved]
  - Neuropathy peripheral [Unknown]
  - Back pain [Unknown]
  - Muscle strain [Not Recovered/Not Resolved]
  - Fall [Recovering/Resolving]
  - Muscle strain [Recovering/Resolving]
  - Osteoarthritis [Not Recovered/Not Resolved]
  - Pain [Recovering/Resolving]
  - Injury associated with device [Unknown]

NARRATIVE: CASE EVENT DATE: 2021
